FAERS Safety Report 8217354-0 (Version None)
Quarter: 2012Q1

REPORT INFORMATION
  Report Type: 
  Country: None (occurrence: None)
  Receive Date: 20120313
  Receipt Date: 20120301
  Transmission Date: 20120608
  Serious: Yes (Other)
  Sender: FDA-Public Use
  Company Number: 2012MA003114

PATIENT
  Sex: Female

DRUGS (2)
  1. MIRTAZAPINE [Suspect]
     Indication: DEPRESSION
     Dosage: 15 MG
  2. MIRTAZAPINE [Suspect]
     Indication: DEPRESSION
     Dosage: 15 MG

REACTIONS (10)
  - FEELING HOT [None]
  - DRUG WITHDRAWAL SYNDROME [None]
  - DYSPHAGIA [None]
  - CHEST DISCOMFORT [None]
  - RESTLESSNESS [None]
  - HYPERHIDROSIS [None]
  - FEELING ABNORMAL [None]
  - DRUG INEFFECTIVE [None]
  - ANXIETY [None]
  - DRY EYE [None]
